FAERS Safety Report 7432628-9 (Version None)
Quarter: 2011Q2

REPORT INFORMATION
  Report Type: 
  Country: None (occurrence: None)
  Receive Date: 20110422
  Receipt Date: 20110412
  Transmission Date: 20111010
  Serious: Yes (Other)
  Sender: FDA-Public Use
  Company Number: PHHY2011FR31948

PATIENT
  Age: 69 Year

DRUGS (3)
  1. AFINITOR [Suspect]
     Dosage: 5 MG, QD
     Route: 048
     Dates: start: 20110201
  2. AFINITOR [Suspect]
     Indication: RENAL CANCER METASTATIC
     Dosage: 10 MG, QD
     Route: 048
     Dates: start: 20100210
  3. AFINITOR [Suspect]
     Dosage: 5 MG, QOD
     Route: 048
     Dates: start: 20110301

REACTIONS (6)
  - BLOOD CREATININE INCREASED [None]
  - RENAL FAILURE [None]
  - DIABETES MELLITUS [None]
  - OCULAR DISCOMFORT [None]
  - NEUTROPENIA [None]
  - PLATELET COUNT DECREASED [None]
